FAERS Safety Report 7750358 (Version 2)
Quarter: 2014Q1

REPORT INFORMATION
  Report Type: Spontaneous
  Country: US (occurrence: US)
  Receive Date: 20110106
  Receipt Date: 20140204
  Transmission Date: 20141002
  Serious: Yes (Hospitalization)
  Sender: FDA-Public Use
  Company Number: US-JNJFOC-20110100352

PATIENT
  Age: 38 Year
  Sex: Female
  Weight: 89.36 kg

DRUGS (5)
  1. DURAGESIC [Suspect]
     Indication: BACK PAIN
     Route: 062
     Dates: start: 2005, end: 201009
  2. DURAGESIC [Suspect]
     Indication: BACK PAIN
     Route: 062
     Dates: start: 2002, end: 2005
  3. DURAGESIC [Suspect]
     Indication: BACK PAIN
     Route: 062
     Dates: start: 20101217, end: 20101217
  4. ALPRAZOLAM [Concomitant]
     Route: 048
  5. LEXAPRO [Concomitant]
     Indication: ANTIDEPRESSANT THERAPY
     Route: 048

REACTIONS (25)
  - Delusion [Not Recovered/Not Resolved]
  - Paranoia [Unknown]
  - Dyspnoea [Recovered/Resolved]
  - Back disorder [Recovered/Resolved]
  - Sciatic nerve injury [Recovered/Resolved]
  - Back disorder [Recovered/Resolved]
  - Abnormal loss of weight [Not Recovered/Not Resolved]
  - Depression [Not Recovered/Not Resolved]
  - Suicide attempt [Not Recovered/Not Resolved]
  - Delirium tremens [Recovered/Resolved]
  - White blood cell count increased [Unknown]
  - Hypersensitivity [Recovered/Resolved]
  - Intervertebral disc disorder [Recovered/Resolved]
  - Skin discolouration [Not Recovered/Not Resolved]
  - Pyrexia [Recovered/Resolved]
  - Vomiting [Recovered/Resolved]
  - Anger [Not Recovered/Not Resolved]
  - Thinking abnormal [Not Recovered/Not Resolved]
  - Asthenia [Unknown]
  - Fatigue [Unknown]
  - Loss of consciousness [Recovered/Resolved]
  - Dysstasia [Recovered/Resolved]
  - Feeling abnormal [Recovered/Resolved]
  - Alopecia [Not Recovered/Not Resolved]
  - Product quality issue [Unknown]
